FAERS Safety Report 8198781-7 (Version None)
Quarter: 2012Q1

REPORT INFORMATION
  Report Type: 
  Country: None (occurrence: None)
  Receive Date: 20120309
  Receipt Date: 20120207
  Transmission Date: 20120608
  Serious: No
  Sender: FDA-Public Use
  Company Number: US-AMGEN-USASP2011031688

PATIENT
  Age: 69 Year
  Sex: Female

DRUGS (7)
  1. VITAMIN D [Concomitant]
  2. SYNTHROID [Concomitant]
     Dosage: 88 MUG, UNK
  3. ALPRAZOLAM [Concomitant]
     Dosage: UNK UNK, BID
  4. PROTONIX [Concomitant]
  5. PROLIA [Suspect]
     Indication: OSTEOPOROSIS POSTMENOPAUSAL
     Dosage: 60 MG, Q6MO
     Route: 058
     Dates: start: 20101006, end: 20111107
  6. LOVASTATIN [Concomitant]
     Dosage: 20 MG, UNK
  7. PROPRANOLOL/HCTZ [Concomitant]

REACTIONS (4)
  - MUSCLE SPASMS [None]
  - ARTHRALGIA [None]
  - MYALGIA [None]
  - BACK PAIN [None]
